FAERS Safety Report 18445704 (Version 1)
Quarter: 2020Q4

REPORT INFORMATION
  Report Type: Spontaneous
  Country: GB (occurrence: GB)
  Receive Date: 20201030
  Receipt Date: 20201030
  Transmission Date: 20210114
  Serious: Yes (Hospitalization)
  Sender: FDA-Public Use
  Company Number: GB-TEVA-2020-GB-1843624

PATIENT
  Age: 45 Year
  Sex: Female

DRUGS (1)
  1. IBUPROFEN. [Suspect]
     Active Substance: IBUPROFEN
     Indication: DRUG ABUSE
     Route: 065

REACTIONS (6)
  - Toxicity to various agents [Recovered/Resolved]
  - Hypoaldosteronism [Recovered/Resolved]
  - Renal tubular acidosis [Recovered/Resolved]
  - Drug abuse [Recovered/Resolved]
  - Electrocardiogram abnormal [Recovered/Resolved]
  - Quadriparesis [Recovered/Resolved]
